FAERS Safety Report 25882308 (Version 1)
Quarter: 2025Q4

REPORT INFORMATION
  Report Type: Spontaneous
  Country: US (occurrence: US)
  Receive Date: 20251006
  Receipt Date: 20251006
  Transmission Date: 20260117
  Serious: No
  Sender: ELI LILLY AND COMPANY
  Company Number: US-ELI_LILLY_AND_COMPANY-US202510003679

PATIENT
  Age: 67 Year

DRUGS (1)
  1. CYMBALTA [Suspect]
     Active Substance: DULOXETINE HYDROCHLORIDE
     Indication: Fibromyalgia
     Dosage: UNK, UNKNOWN
     Route: 065

REACTIONS (3)
  - Photophobia [Recovering/Resolving]
  - Blepharospasm [Recovering/Resolving]
  - Drug withdrawal syndrome [Unknown]

NARRATIVE: CASE EVENT DATE: 20230101
